FAERS Safety Report 23777613 (Version 1)
Quarter: 2024Q2

REPORT INFORMATION
  Report Type: Spontaneous
  Country: US (occurrence: None)
  Receive Date: 20240423
  Receipt Date: 20240423
  Transmission Date: 20240716
  Serious: Yes (Hospitalization, Disabling)
  Sender: FDA-Public Use
  Company Number: None

PATIENT
  Age: 32 Year
  Sex: Female
  Weight: 72 kg

DRUGS (5)
  1. LEVAQUIN [Suspect]
     Active Substance: LEVOFLOXACIN
     Indication: Urinary tract infection
     Dates: start: 20240201, end: 20240201
  2. CLARITIN [Concomitant]
     Active Substance: LORATADINE
  3. VITAMIN D [Concomitant]
     Active Substance: VITAMIN D NOS
  4. vitaimin C [Concomitant]
  5. multi vitamin [Concomitant]

REACTIONS (6)
  - Hypoaesthesia [None]
  - Hypoaesthesia [None]
  - Hypoaesthesia [None]
  - Hypoaesthesia [None]
  - Mental disorder [None]
  - Tendon pain [None]

NARRATIVE: CASE EVENT DATE: 20240201
